FAERS Safety Report 6537654-X (Version None)
Quarter: 2010Q1

REPORT INFORMATION
  Report Type: 
  Country: None (occurrence: None)
  Receive Date: 20100114
  Receipt Date: 20100104
  Transmission Date: 20100710
  Serious: Yes (Other)
  Sender: FDA-Public Use
  Company Number: B0623376A

PATIENT
  Age: 23 Year
  Sex: Male

DRUGS (2)
  1. ARIXTRA [Suspect]
     Indication: THROMBOSIS PROPHYLAXIS
     Route: 058
     Dates: start: 20091025
  2. PARACETAMOL [Suspect]
     Route: 048
     Dates: start: 20091025

REACTIONS (1)
  - THROMBOCYTOSIS [None]
